FAERS Safety Report 9239297 (Version 1)
Quarter: 2013Q2

REPORT INFORMATION
  Report Type: Report from Study
  Country: DE (occurrence: US)
  Receive Date: 20130418
  Receipt Date: 20130418
  Transmission Date: 20140414
  Serious: No
  Sender: FDA-Public Use
  Company Number: DE-009507513-1207USA010968

PATIENT
  Sex: 0

DRUGS (3)
  1. BLINDED ETONOGESTREL IMPLANT- IMPLANON NEXT [Suspect]
     Dosage: UNK
     Dates: start: 20120409
  2. BLINDED POST TRIAL THERAPY [Suspect]
     Dosage: UNK
     Dates: start: 20120409
  3. BLINDED PRE TRIAL THERAPY [Suspect]
     Dosage: UNK
     Dates: start: 20120409

REACTIONS (2)
  - Device expulsion [Unknown]
  - No adverse event [Unknown]
